FAERS Safety Report 4498281-1 (Version None)
Quarter: 2004Q3

REPORT INFORMATION
  Report Type: 
  Country: None (occurrence: None)
  Receive Date: 20040927
  Receipt Date: 20040611
  Transmission Date: 20050211
  Serious: No
  Sender: FDA-Public Use
  Company Number: USA040669963

PATIENT
  Age: 42 Year
  Sex: Male

DRUGS (2)
  1. STRATTERA [Suspect]
     Indication: ANXIETY DISORDER
     Dosage: 120 MG
     Dates: start: 20040501
  2. VALTREX [Concomitant]

REACTIONS (2)
  - PAROTID GLAND ENLARGEMENT [None]
  - PRESCRIBED OVERDOSE [None]
